FAERS Safety Report 8834061 (Version 1)
Quarter: 2012Q4

REPORT INFORMATION
  Report Type: 
  Country: JP (occurrence: JP)
  Receive Date: 20121010
  Receipt Date: 20121010
  Transmission Date: 20130627
  Serious: Yes (Hospitalization)
  Sender: FDA-Public Use
  Company Number: JP-WATSON-2012-17272

PATIENT
  Age: 69 Year
  Sex: Male

DRUGS (2)
  1. PRAMIPEXOLE DIHYDROCHLORIDE (UNKNOWN) [Suspect]
     Indication: PARKINSON^S DISEASE
     Dosage: 1.5 mg, daily
     Route: 065
  2. LEVODOPA-CARBIDOPA [Suspect]
     Indication: PARKINSON^S DISEASE
     Dosage: 300/30 mg daily
     Route: 065

REACTIONS (2)
  - Faecaloma [Recovered/Resolved]
  - Neuroleptic malignant syndrome [Recovered/Resolved]
